FAERS Safety Report 7363839-9 (Version None)
Quarter: 2011Q1

REPORT INFORMATION
  Report Type: 
  Country: None (occurrence: None)
  Receive Date: 20110321
  Receipt Date: 20110317
  Transmission Date: 20110831
  Serious: Yes (Other)
  Sender: FDA-Public Use
  Company Number: BE-ROCHE-759511

PATIENT
  Sex: Female
  Weight: 57 kg

DRUGS (2)
  1. FOLFIRI REGIMEN [Concomitant]
     Indication: COLON CANCER METASTATIC
  2. AVASTIN [Suspect]
     Indication: COLON CANCER METASTATIC
     Route: 042

REACTIONS (1)
  - DEVICE BREAKAGE [None]
